FAERS Safety Report 5866235-6 (Version None)
Quarter: 2008Q3

REPORT INFORMATION
  Report Type: 
  Country: None (occurrence: None)
  Receive Date: 20080829
  Receipt Date: 20080819
  Transmission Date: 20090109
  Serious: Yes (Death, Hospitalization)
  Sender: FDA-Public Use
  Company Number: BR-PFIZER INC-2008069907

PATIENT
  Sex: Female
  Weight: 104 kg

DRUGS (8)
  1. MARAVIROC [Suspect]
     Indication: HIV INFECTION
     Route: 048
  2. KALETRA [Concomitant]
     Route: 048
  3. LAMIVUDINE [Concomitant]
     Route: 048
  4. ESTAVUDINA [Concomitant]
     Route: 048
  5. CAPTOPRIL [Concomitant]
     Route: 048
  6. HYDROCHLOROTHIAZIDE [Concomitant]
     Route: 048
  7. BACTRIM [Concomitant]
     Route: 048
  8. FLUOXETINE [Concomitant]
     Route: 048

REACTIONS (2)
  - NEUROPATHY PERIPHERAL [None]
  - PANCREATITIS [None]
